FAERS Safety Report 18806842 (Version 6)
Quarter: 2023Q2

REPORT INFORMATION
  Report Type: Report from Study
  Country: JP (occurrence: JP)
  Receive Date: 20210128
  Receipt Date: 20230504
  Transmission Date: 20230722
  Serious: Yes (Hospitalization, Other)
  Sender: FDA-Public Use
  Company Number: JP-BAXTER-2020BAX021779

PATIENT
  Age: 67 Year
  Sex: Female

DRUGS (16)
  1. DOXORUBICIN [Suspect]
     Active Substance: DOXORUBICIN
     Dosage: UNK
     Route: 042
  2. CYCLOPHOSPHAMIDE [Suspect]
     Active Substance: CYCLOPHOSPHAMIDE
     Indication: Triple negative breast cancer
     Dosage: AS A PART OF DDEC THERAPY 604.8 MG/M2, ONCE IN TWO WEEKS FOR 4 DOSES, MOST RECENT DOSE PRIOR TO AE
     Route: 042
     Dates: start: 20190325
  3. CYCLOPHOSPHAMIDE [Suspect]
     Active Substance: CYCLOPHOSPHAMIDE
     Dosage: 604.8 MG, MOST RECENT DOSE PRIOR TO ONSET OF FEBRILE NEUTROPENIA AND PLATELET COUNT DECRESED
     Route: 042
     Dates: start: 20190506
  4. EPIRUBICIN HYDROCHLORIDE [Suspect]
     Active Substance: EPIRUBICIN HYDROCHLORIDE
     Indication: Triple negative breast cancer
     Dosage: AS A PART OF DDEC THERAPY 90.72 MG/M2 ONCE IN TWO WEEKS FOR A TOTAL OF 4 DOSES, MOST RECENT DOSE PRI
     Route: 042
     Dates: start: 20190325
  5. EPIRUBICIN HYDROCHLORIDE [Suspect]
     Active Substance: EPIRUBICIN HYDROCHLORIDE
     Dosage: 90.72 MG; MOST RECENT DOSE PRIOR TO ONSET OF FEBRILE NEUTROPENIA AND PLATELET COUNT DECREASED
     Route: 042
     Dates: start: 20190506
  6. EPIRUBICIN HYDROCHLORIDE [Suspect]
     Active Substance: EPIRUBICIN HYDROCHLORIDE
     Dosage: LAST DOSE ADMINISTERED PRIOR TO AE ONSET WAS 1221.5 MG AND SAE ONSET WAS 90.72 MG
     Route: 065
     Dates: start: 20190318
  7. ATEZOLIZUMAB [Concomitant]
     Active Substance: ATEZOLIZUMAB
     Indication: Triple negative breast cancer
     Dosage: 840 MG ONCE IN TWO WEEKS FOR 10 DOSES (GENETICAL RECOMBINATION)
     Route: 041
     Dates: start: 20181226
  8. ATEZOLIZUMAB [Concomitant]
     Active Substance: ATEZOLIZUMAB
     Dosage: MOST RECENT DOSE PRIOR TO AE
     Route: 042
     Dates: start: 20190325
  9. ATEZOLIZUMAB [Concomitant]
     Active Substance: ATEZOLIZUMAB
     Dosage: MOST RECENT DOSE PRIOR TO ONSET OF FEBRILE NEUTROPENIA AND PLATELET COUNT DECREASED
     Route: 042
     Dates: start: 20190506
  10. PACLITAXEL [Concomitant]
     Active Substance: PACLITAXEL
     Indication: Triple negative breast cancer
     Dosage: 80 MG/M2 ONCE IN A WEEK FOR 12 WEEKS
     Route: 041
     Dates: start: 20181226
  11. PACLITAXEL [Concomitant]
     Active Substance: PACLITAXEL
     Dosage: 111.2 MG/DAY;  MOST RECENT DOSE PRIOR TO ANEMIA
     Route: 042
     Dates: start: 20190318
  12. PACLITAXEL [Concomitant]
     Active Substance: PACLITAXEL
     Dosage: LAST DOSE PRIOR TO ANEMIA 15.8857 MG/M2
     Route: 042
     Dates: start: 20190325, end: 20190325
  13. PEGFILGRASTIM [Concomitant]
     Active Substance: PEGFILGRASTIM
     Indication: Triple negative breast cancer
     Dosage: 3.6 MG ONCE IN TWO WEEKS; INJECTION SOLUTION; GENETICAL RECOMBINATION (CYCLE 4 VISIT 1)
     Route: 058
     Dates: start: 20190327, end: 20190327
  14. PEGFILGRASTIM [Concomitant]
     Active Substance: PEGFILGRASTIM
     Dosage: 3.6 MG ONCE IN TWO WEEKS, IINJECTION SOLUTION GENETICAL RECOMBINATION (CYCLE 4 VISIT 2)
     Route: 058
     Dates: start: 20190411, end: 20190411
  15. PEGFILGRASTIM [Concomitant]
     Active Substance: PEGFILGRASTIM
     Dosage: 3.6 MG ONCE IN TWO WEEKS, INJECTION SOLUTION GENETICAL RECOMBINATION (CYCLE 5 VISIT 1)
     Route: 058
     Dates: start: 20190424, end: 20190424
  16. PEGFILGRASTIM [Concomitant]
     Active Substance: PEGFILGRASTIM
     Dosage: 3.6 MG ONCE IN TWO WEEKS, INJECTION SOLUTION GENETICAL RECOMBINATION (CYCLE 5 VISIT 2)
     Route: 058
     Dates: start: 20190508, end: 20190508

REACTIONS (3)
  - Febrile neutropenia [Recovered/Resolved]
  - Platelet count decreased [Recovered/Resolved]
  - Anaemia [Recovered/Resolved]

NARRATIVE: CASE EVENT DATE: 20190409
